FAERS Safety Report 24891837 (Version 1)
Quarter: 2025Q1

REPORT INFORMATION
  Report Type: Spontaneous
  Country: IL (occurrence: IL)
  Receive Date: 20250127
  Receipt Date: 20250127
  Transmission Date: 20250408
  Serious: Yes (Hospitalization)
  Sender: JOHNSON AND JOHNSON
  Company Number: IL-ABBVIE-6101421

PATIENT
  Age: 68 Year
  Sex: Male

DRUGS (2)
  1. IBRUTINIB [Suspect]
     Active Substance: IBRUTINIB
     Indication: Chronic lymphocytic leukaemia
     Route: 048
  2. VENCLEXTA [Suspect]
     Active Substance: VENETOCLAX
     Indication: Chronic lymphocytic leukaemia
     Route: 048

REACTIONS (9)
  - Atrial fibrillation [Unknown]
  - Pneumonia [Unknown]
  - Tricuspid valve incompetence [Unknown]
  - Procedural complication [Unknown]
  - Aortic valve calcification [Unknown]
  - Left ventricular dysfunction [Unknown]
  - Coronary artery disease [Unknown]
  - Ejection fraction decreased [Unknown]
  - Mitral valve incompetence [Unknown]
